FAERS Safety Report 24871159 (Version 1)
Quarter: 2025Q1

REPORT INFORMATION
  Report Type: Report from Study
  Country: IN (occurrence: IN)
  Receive Date: 20250122
  Receipt Date: 20250122
  Transmission Date: 20250409
  Serious: Yes (Hospitalization, Other)
  Sender: ROCHE
  Company Number: IN-ROCHE-10000098137

PATIENT
  Age: 63 Year
  Sex: Female
  Weight: 60.1 kg

DRUGS (3)
  1. POLIVY [Suspect]
     Active Substance: POLATUZUMAB VEDOTIN-PIIQ
     Indication: Diffuse large B-cell lymphoma
     Route: 042
  2. POLIVY [Suspect]
     Active Substance: POLATUZUMAB VEDOTIN-PIIQ
     Route: 042
  3. POLIVY [Suspect]
     Active Substance: POLATUZUMAB VEDOTIN-PIIQ
     Route: 042
     Dates: start: 20241004

REACTIONS (9)
  - Full blood count abnormal [Unknown]
  - Off label use [Unknown]
  - Pyrexia [Unknown]
  - Fatigue [Unknown]
  - Red blood cell transfusion [Unknown]
  - Haemoglobin decreased [Unknown]
  - Mass [Unknown]
  - Neck mass [Unknown]
  - Diffuse large B-cell lymphoma [Unknown]
